FAERS Safety Report 13631861 (Version 3)
Quarter: 2017Q4

REPORT INFORMATION
  Report Type: Spontaneous
  Country: US (occurrence: US)
  Receive Date: 20170608
  Receipt Date: 20171208
  Transmission Date: 20180320
  Serious: No
  Sender: FDA-Public Use
  Company Number: US-ACTELION-A-NJ2017-154108

PATIENT
  Age: 45 Year
  Sex: Female

DRUGS (4)
  1. OPSUMIT [Suspect]
     Active Substance: MACITENTAN
     Indication: PULMONARY ARTERIAL HYPERTENSION
     Dosage: 10 MG, QD
     Route: 048
     Dates: start: 20140409
  2. SILDENAFIL. [Concomitant]
     Active Substance: SILDENAFIL
  3. REMODULIN [Concomitant]
     Active Substance: TREPROSTINIL
  4. UPTRAVI [Suspect]
     Active Substance: SELEXIPAG
     Indication: PULMONARY ARTERIAL HYPERTENSION
     Dosage: UNK, BID
     Route: 048
     Dates: end: 20170508

REACTIONS (7)
  - Dyspnoea [Recovering/Resolving]
  - Pain in jaw [Recovering/Resolving]
  - Device related infection [Not Recovered/Not Resolved]
  - Weight increased [Recovering/Resolving]
  - Catheter site inflammation [Unknown]
  - Headache [Recovering/Resolving]
  - Catheter management [Unknown]

NARRATIVE: CASE EVENT DATE: 20170601
